FAERS Safety Report 7417371-4 (Version None)
Quarter: 2011Q2

REPORT INFORMATION
  Report Type: 
  Country: None (occurrence: None)
  Receive Date: 20110415
  Receipt Date: 20110206
  Transmission Date: 20111010
  Serious: No
  Sender: FDA-Public Use
  Company Number: US-B.I. PHARMACEUTICALS,INC./RIDGEFIELD-2011-BP-03911BP

PATIENT
  Sex: Male

DRUGS (7)
  1. PRADAXA [Suspect]
     Indication: ATRIAL FIBRILLATION
     Dosage: 300 MG
     Route: 048
     Dates: start: 20110205
  2. ASPIRIN [Concomitant]
  3. INDAPAMIDE [Concomitant]
  4. NADOLOL [Concomitant]
  5. POTASSIUM [Concomitant]
  6. LOVASTATIN [Concomitant]
  7. DIGOXIN [Concomitant]

REACTIONS (2)
  - ABDOMINAL DISCOMFORT [None]
  - THROAT IRRITATION [None]
